FAERS Safety Report 10157398 (Version 6)
Quarter: 2017Q2

REPORT INFORMATION
  Report Type: Report from Study
  Country: DE (occurrence: DE)
  Receive Date: 20140507
  Receipt Date: 20170425
  Transmission Date: 20170829
  Serious: Yes (Death, Other)
  Sender: FDA-Public Use
  Company Number: DE-CELGENEUS-062-21880-13072731

PATIENT

DRUGS (1)
  1. REVLIMID [Suspect]
     Active Substance: LENALIDOMIDE
     Indication: 5Q MINUS SYNDROME
     Dosage: 10 MILLIGRAM
     Route: 048
     Dates: end: 20140331

REACTIONS (22)
  - Joint effusion [Unknown]
  - Nasopharyngitis [Unknown]
  - Constipation [Unknown]
  - Nausea [Unknown]
  - Dizziness [Unknown]
  - Myelodysplastic syndrome [Unknown]
  - Full blood count decreased [Unknown]
  - Myelodysplastic syndrome transformation [Unknown]
  - Urinary tract disorder [Unknown]
  - Blood growth hormone decreased [Unknown]
  - Circulatory collapse [Unknown]
  - Meningitis [Unknown]
  - Diarrhoea [Unknown]
  - Death [Fatal]
  - Muscle spasms [Unknown]
  - Palpitations [Unknown]
  - Cerebral infarction [Unknown]
  - Infection [Unknown]
  - Acute myeloid leukaemia [Unknown]
  - Therapy non-responder [Unknown]
  - Ulna fracture [Unknown]
  - Fatigue [Unknown]
